FAERS Safety Report 7656979-8 (Version None)
Quarter: 2011Q3

REPORT INFORMATION
  Report Type: 
  Country: None (occurrence: None)
  Receive Date: 20110729
  Receipt Date: 20110603
  Transmission Date: 20111222
  Serious: No
  Sender: FDA-Public Use
  Company Number: 2011-00529

PATIENT
  Age: 44 Year
  Sex: Male

DRUGS (2)
  1. PRILOSEC [Concomitant]
  2. ZICAM EXTREME CONGESTION RELIEF [Suspect]
     Dosage: ^USED FOR 3 DAYS^

REACTIONS (2)
  - ANOSMIA [None]
  - AGEUSIA [None]
